FAERS Safety Report 5130259-7 (Version None)
Quarter: 2006Q4

REPORT INFORMATION
  Report Type: 
  Country: None (occurrence: None)
  Receive Date: 20061013
  Receipt Date: 20060925
  Transmission Date: 20070319
  Serious: Yes (Hospitalization)
  Sender: FDA-Public Use
  Company Number: US200609006363

PATIENT
  Age: 61 Year
  Sex: Male

DRUGS (5)
  1. ALIMTA [Suspect]
     Indication: NON-SMALL CELL LUNG CANCER STAGE IIIB
     Dosage: 450 MG/M2, INTRAVENOUS
     Route: 042
  2. KYTRIL [Concomitant]
  3. FOLIC ACID [Concomitant]
  4. CYANOCOBALAMIN [Concomitant]
  5. DEXAMETHASONE [Concomitant]

REACTIONS (1)
  - INTERSTITIAL LUNG DISEASE [None]
